FAERS Safety Report 8601006-9 (Version None)
Quarter: 2012Q2

REPORT INFORMATION
  Report Type: 
  Country: None (occurrence: None)
  Receive Date: 20120423
  Receipt Date: 20100126
  Transmission Date: 20120825
  Serious: Yes (Other)
  Sender: FDA-Public Use
  Company Number: PHEH2010US01451

PATIENT
  Sex: Female

DRUGS (1)
  1. FEMARA [Suspect]
     Dosage: 2.5 MG
     Dates: start: 20091217

REACTIONS (5)
  - FATIGUE [None]
  - INSOMNIA [None]
  - ANXIETY [None]
  - DEPRESSION [None]
  - DECREASED APPETITE [None]
